FAERS Safety Report 5603111-8 (Version None)
Quarter: 2008Q1

REPORT INFORMATION
  Report Type: 
  Country: None (occurrence: None)
  Receive Date: 20080125
  Receipt Date: 20080122
  Transmission Date: 20080703
  Serious: Yes (Hospitalization)
  Sender: FDA-Public Use
  Company Number: US-BRISTOL-MYERS SQUIBB COMPANY-14048920

PATIENT
  Age: 31 Year
  Sex: Male

DRUGS (1)
  1. ARIPIPRAZOLE [Suspect]
     Indication: SCHIZOPHRENIA

REACTIONS (4)
  - AGITATION [None]
  - CONFUSIONAL STATE [None]
  - OVERDOSE [None]
  - SCHIZOPHRENIA [None]
